FAERS Safety Report 7864102-X (Version None)
Quarter: 2011Q4

REPORT INFORMATION
  Report Type: 
  Country: None (occurrence: None)
  Receive Date: 20111028
  Receipt Date: 20111019
  Transmission Date: 20120403
  Serious: Yes (Other)
  Sender: FDA-Public Use
  Company Number: GB-US-EMD SERONO, INC.-7088626

PATIENT
  Sex: Female
  Weight: 78 kg

DRUGS (3)
  1. QVAR 40 [Concomitant]
     Indication: ASTHMA
     Dates: start: 20050523
  2. SAIZEN [Suspect]
     Indication: PRODUCT USED FOR UNKNOWN INDICATION
     Route: 058
     Dates: start: 20110101
  3. CITALOPRAM HYDROBROMIDE [Concomitant]
     Indication: DEPRESSION
     Route: 048
     Dates: start: 20081223

REACTIONS (6)
  - INCORRECT STORAGE OF DRUG [None]
  - MALAISE [None]
  - TREMOR [None]
  - EAR DISORDER [None]
  - HYPERTENSION [None]
  - DIZZINESS [None]
